FAERS Safety Report 24664902 (Version 1)
Quarter: 2024Q4

REPORT INFORMATION
  Report Type: Spontaneous
  Country: US (occurrence: US)
  Receive Date: 20241126
  Receipt Date: 20241126
  Transmission Date: 20250115
  Serious: Yes (Other)
  Sender: PFIZER
  Company Number: US-PFIZER INC-202400306495

PATIENT
  Age: 58 Year
  Sex: Female
  Weight: 69 kg

DRUGS (1)
  1. SOLU-CORTEF [Suspect]
     Active Substance: HYDROCORTISONE SODIUM SUCCINATE
     Indication: Adrenal insufficiency
     Dosage: 100 MG, INJECTION, ON EMERGENCY BASIS
     Dates: start: 2010

REACTIONS (3)
  - Arthropathy [Unknown]
  - Fungal infection [Unknown]
  - Arthritis infective [Unknown]

NARRATIVE: CASE EVENT DATE: 20241119
